FAERS Safety Report 8119155-0 (Version None)
Quarter: 2012Q1

REPORT INFORMATION
  Report Type: 
  Country: None (occurrence: None)
  Receive Date: 20120207
  Receipt Date: 20120207
  Transmission Date: 20120608
  Serious: Yes (Other)
  Sender: FDA-Public Use
  Company Number: None

PATIENT
  Sex: Female
  Weight: 90.718 kg

DRUGS (1)
  1. BYETTA [Suspect]
     Indication: TYPE 2 DIABETES MELLITUS
     Dosage: 5 MCG
     Route: 058
     Dates: start: 20111213, end: 20120109

REACTIONS (2)
  - CHEST DISCOMFORT [None]
  - COUGH [None]
